FAERS Safety Report 7371812-X (Version None)
Quarter: 2011Q1

REPORT INFORMATION
  Report Type: 
  Country: None (occurrence: None)
  Receive Date: 20110324
  Receipt Date: 20110311
  Transmission Date: 20110831
  Serious: Yes (Other)
  Sender: FDA-Public Use
  Company Number: PHHY2011ZA20334

PATIENT
  Sex: Female

DRUGS (2)
  1. ACLASTA [Suspect]
     Dosage: 5 MG, YEARLY
     Dates: start: 20090301
  2. ACLASTA [Suspect]
     Dosage: 5 MG, YEARLY
     Dates: start: 20100501

REACTIONS (2)
  - CYSTITIS [None]
  - URINARY TRACT INFECTION [None]
